FAERS Safety Report 7995283-5 (Version None)
Quarter: 2011Q4

REPORT INFORMATION
  Report Type: 
  Country: None (occurrence: None)
  Receive Date: 20111220
  Receipt Date: 20111215
  Transmission Date: 20120403
  Serious: Yes (Other)
  Sender: FDA-Public Use
  Company Number: BR-ABBOTT-10P-020-0661678-00

PATIENT
  Sex: Female

DRUGS (8)
  1. OMEPRAZOLE [Concomitant]
     Indication: GASTRIC DISORDER
  2. DICLOFENAC [Concomitant]
     Indication: PAIN
  3. HUMIRA [Suspect]
     Indication: PRODUCT USED FOR UNKNOWN INDICATION
  4. AZATHIOPRINE [Concomitant]
     Indication: SYSTEMIC LUPUS ERYTHEMATOSUS
     Route: 048
  5. ATENOLOL [Concomitant]
     Indication: HYPERTENSION
  6. LOSARTAN POTASSIUM [Concomitant]
     Indication: HYPERTENSION
  7. SERTRALINE HYDROCHLORIDE [Concomitant]
     Indication: ANTIDEPRESSANT THERAPY
  8. CLONAZEPAM [Concomitant]
     Indication: ANTIDEPRESSANT THERAPY

REACTIONS (3)
  - RENAL DISORDER [None]
  - MATERNAL EXPOSURE DURING PREGNANCY [None]
  - ABORTION SPONTANEOUS [None]
